FAERS Safety Report 9410923 (Version 1)
Quarter: 2013Q3

REPORT INFORMATION
  Report Type: Spontaneous
  Country: TR (occurrence: TR)
  Receive Date: 20130719
  Receipt Date: 20130719
  Transmission Date: 20140515
  Serious: Yes (Other)
  Sender: FDA-Public Use
  Company Number: TR-BAXTER-2013BAX027127

PATIENT
  Age: 47 Year
  Sex: Male

DRUGS (8)
  1. AERRANE [Suspect]
     Indication: GENERAL ANAESTHESIA
  2. LIDOCAINE [Suspect]
     Indication: GENERAL ANAESTHESIA
  3. NA-THIOPENTAL [Suspect]
     Indication: GENERAL ANAESTHESIA
  4. ROCURONIUM [Suspect]
     Indication: GENERAL ANAESTHESIA
  5. REMIFENTANIL [Suspect]
     Indication: GENERAL ANAESTHESIA
  6. CEFAZOLIN [Suspect]
     Indication: PROPHYLAXIS
  7. PRENOL [Suspect]
     Indication: PROPHYLAXIS
  8. RANITIDINE [Suspect]
     Indication: PROPHYLAXIS

REACTIONS (2)
  - Anaphylactic shock [Unknown]
  - Cardiac arrest [Unknown]
